FAERS Safety Report 5301325-8 (Version None)
Quarter: 2007Q2

REPORT INFORMATION
  Report Type: 
  Country: None (occurrence: None)
  Receive Date: 20070412
  Receipt Date: 20070402
  Transmission Date: 20071010
  Serious: Yes (Hospitalization)
  Sender: FDA-Public Use
  Company Number: 2007-01697

PATIENT
  Age: 38 Year
  Sex: Female
  Weight: 98.9 kg

DRUGS (2)
  1. NORA-BE(WATSON LABORATORIES) (NOERTHINDRONE) TABLET 0.35 MG [Suspect]
     Indication: CONTRACEPTION
     Dosage: 1 TABLET, DAILY, ORAL
     Route: 048
     Dates: start: 20060601, end: 20070112
  2. LOPRESSOR [Concomitant]

REACTIONS (2)
  - BLOOD CHOLESTEROL INCREASED [None]
  - MYOCARDIAL INFARCTION [None]
